FAERS Safety Report 5374577-6 (Version None)
Quarter: 2007Q2

REPORT INFORMATION
  Report Type: 
  Country: None (occurrence: None)
  Receive Date: 20070629
  Receipt Date: 20070621
  Transmission Date: 20071010
  Serious: Yes (Other)
  Sender: FDA-Public Use
  Company Number: GB-AMGEN-US228039

PATIENT
  Sex: Female
  Weight: 65.7 kg

DRUGS (5)
  1. ENBREL [Suspect]
     Indication: DRUG USE FOR UNKNOWN INDICATION
     Dosage: 50 MG FREQUENCY UNKNOWN
     Route: 058
     Dates: start: 20070228, end: 20070502
  2. CO-PROXAMOL [Concomitant]
     Dosage: 2 TABS
     Route: 048
     Dates: start: 20010101
  3. ACETYLSALICYLIC ACID SRT [Concomitant]
     Dosage: UNKNOWN
     Route: 048
  4. COZAAR [Concomitant]
     Route: 048
     Dates: start: 20041201
  5. NABUMETONE [Concomitant]
     Dosage: 1 G NOCTE
     Route: 048

REACTIONS (1)
  - FREQUENT BOWEL MOVEMENTS [None]
